FAERS Safety Report 21128422 (Version 2)
Quarter: 2022Q3

REPORT INFORMATION
  Report Type: Report from Study
  Country: AU (occurrence: AU)
  Receive Date: 20220725
  Receipt Date: 20220909
  Transmission Date: 20221027
  Serious: Yes (Hospitalization)
  Sender: FDA-Public Use
  Company Number: AU-BRISTOL-MYERS SQUIBB COMPANY-2022-075768

PATIENT
  Age: 56 Year
  Sex: Male

DRUGS (2)
  1. NIVOLUMAB [Suspect]
     Active Substance: NIVOLUMAB
     Indication: Neoplasm malignant
     Route: 065
  2. IPILIMUMAB [Suspect]
     Active Substance: IPILIMUMAB
     Indication: Neoplasm malignant
     Route: 065

REACTIONS (2)
  - Rash maculo-papular [Recovered/Resolved]
  - Respiratory symptom [Recovered/Resolved]

NARRATIVE: CASE EVENT DATE: 20220715
